FAERS Safety Report 18813534 (Version 1)
Quarter: 2021Q1

REPORT INFORMATION
  Report Type: Spontaneous
  Country: DE (occurrence: DE)
  Receive Date: 20210201
  Receipt Date: 20210201
  Transmission Date: 20210419
  Serious: Yes (Other)
  Sender: FDA-Public Use
  Company Number: DE-US-PROVELL PHARMACEUTICALS LLC-9214260

PATIENT
  Age: 41 Year
  Sex: Female

DRUGS (4)
  1. EUTHYROX [Suspect]
     Active Substance: LEVOTHYROXINE SODIUM
     Dosage: DOSE INCREASED
     Dates: start: 202012
  2. EUTHYROX [Suspect]
     Active Substance: LEVOTHYROXINE SODIUM
     Dosage: DOSE INCREASED
     Dates: start: 2020, end: 202012
  3. SERTRALINE [Suspect]
     Active Substance: SERTRALINE HYDROCHLORIDE
     Indication: PANIC ATTACK
     Dates: start: 2020
  4. EUTHYROX [Suspect]
     Active Substance: LEVOTHYROXINE SODIUM
     Indication: HYPOTHYROIDISM
     Dates: end: 2020

REACTIONS (13)
  - Sensation of foreign body [Unknown]
  - Speech disorder [Unknown]
  - Blood thyroid stimulating hormone decreased [Not Recovered/Not Resolved]
  - Autoimmune thyroiditis [Unknown]
  - Fatigue [Unknown]
  - Dyspepsia [Unknown]
  - Tri-iodothyronine free decreased [Not Recovered/Not Resolved]
  - Thyroxine free decreased [Not Recovered/Not Resolved]
  - Therapeutic response decreased [Unknown]
  - Exophthalmos [Unknown]
  - Weight increased [Unknown]
  - Hypothyroidism [Unknown]
  - Panic attack [Unknown]

NARRATIVE: CASE EVENT DATE: 2020
